FAERS Safety Report 19175790 (Version 6)
Quarter: 2021Q3

REPORT INFORMATION
  Report Type: Report from Study
  Country: US (occurrence: US)
  Receive Date: 20210423
  Receipt Date: 20210731
  Transmission Date: 20211014
  Serious: Yes (Other)
  Sender: FDA-Public Use
  Company Number: NVSC2021US090302

PATIENT
  Age: 76 Year
  Sex: Female

DRUGS (1)
  1. PIQRAY [Suspect]
     Active Substance: ALPELISIB
     Indication: BREAST CANCER
     Dosage: 300 MG, QD (TABLET)
     Route: 048
     Dates: start: 20210409

REACTIONS (18)
  - Breast cancer [Unknown]
  - Abdominal discomfort [Unknown]
  - Asthenia [Unknown]
  - Scaphoid abdomen [Unknown]
  - Diarrhoea [Unknown]
  - Dysphagia [Unknown]
  - Flatulence [Unknown]
  - Weight decreased [Unknown]
  - Hypoacusis [Not Recovered/Not Resolved]
  - Gastrooesophageal reflux disease [Unknown]
  - Rash [Recovered/Resolved]
  - Hyperglycaemia [Unknown]
  - Malignant neoplasm progression [Unknown]
  - Abdominal distension [Unknown]
  - Fatigue [Unknown]
  - Dry mouth [Unknown]
  - Taste disorder [Not Recovered/Not Resolved]
  - Decreased appetite [Recovering/Resolving]

NARRATIVE: CASE EVENT DATE: 20210513
